FAERS Safety Report 11441804 (Version 1)
Quarter: 2015Q3

REPORT INFORMATION
  Report Type: Spontaneous
  Country: US (occurrence: US)
  Receive Date: 20150901
  Receipt Date: 20150901
  Transmission Date: 20151125
  Serious: No
  Sender: FDA-Public Use
  Company Number: US-MYLANLABS-2015M1006009

PATIENT
  Sex: Female

DRUGS (1)
  1. ISOSULFAN BLUE INJECTION [Suspect]
     Active Substance: ISOSULFAN BLUE
     Dosage: 10 ML, ONCE
     Route: 042
     Dates: start: 20150219, end: 20150219

REACTIONS (3)
  - Wrong drug administered [Recovered/Resolved]
  - Skin discolouration [Recovered/Resolved]
  - Incorrect route of drug administration [Recovered/Resolved]

NARRATIVE: CASE EVENT DATE: 20150219
